FAERS Safety Report 7634231-4 (Version None)
Quarter: 2011Q3

REPORT INFORMATION
  Report Type: 
  Country: None (occurrence: None)
  Receive Date: 20110725
  Receipt Date: 20110715
  Transmission Date: 20111222
  Serious: Yes (Other)
  Sender: FDA-Public Use
  Company Number: US-GENZYME-THYM-1002620

PATIENT
  Age: 53 Year
  Sex: Male

DRUGS (9)
  1. AZATHIOPRINE [Concomitant]
     Indication: IMMUNOSUPPRESSION
     Dosage: 2 MG/KG, QD
  2. SIROLIMUS [Concomitant]
     Indication: VASCULAR GRAFT COMPLICATION
     Dosage: UNK
  3. CYCLOSPORINE [Suspect]
     Indication: IMMUNOSUPPRESSION
     Dosage: UNK
  4. 03-OKT [Concomitant]
     Indication: PROPHYLAXIS AGAINST TRANSPLANT REJECTION
     Dosage: 2.5 MG, QD
  5. PRAVASTATIN [Concomitant]
     Indication: PRODUCT USED FOR UNKNOWN INDICATION
     Dosage: 20 MG, QD
  6. CYCLOSPORINE [Suspect]
  7. PREDNISONE [Concomitant]
     Indication: IMMUNOSUPPRESSION
  8. ASPIRIN [Concomitant]
     Indication: PRODUCT USED FOR UNKNOWN INDICATION
     Dosage: 325 MG, QD
  9. THYMOGLOBULIN [Suspect]
     Indication: PROPHYLAXIS AGAINST TRANSPLANT REJECTION
     Dosage: UNK

REACTIONS (5)
  - EPSTEIN-BARR VIRUS ASSOCIATED LYMPHOPROLIFERATIVE DISORDER [None]
  - CYTOMEGALOVIRUS VIRAEMIA [None]
  - RENAL IMPAIRMENT [None]
  - HEART TRANSPLANT REJECTION [None]
  - COMPLICATIONS OF TRANSPLANTED HEART [None]
